FAERS Safety Report 25401285 (Version 1)
Quarter: 2025Q2

REPORT INFORMATION
  Report Type: Spontaneous
  Country: AU (occurrence: None)
  Receive Date: 20250604
  Receipt Date: 20250604
  Transmission Date: 20250716
  Serious: Yes (Life-Threatening, Hospitalization, Disabling)
  Sender: FDA-CTU
  Company Number: None

PATIENT
  Age: 51 Year
  Sex: Female
  Weight: 78 kg

DRUGS (1)
  1. CITALOPRAM [Suspect]
     Active Substance: CITALOPRAM

REACTIONS (19)
  - Withdrawal syndrome [None]
  - Nausea [None]
  - Dizziness [None]
  - Photophobia [None]
  - Hyperacusis [None]
  - Head discomfort [None]
  - Pain [None]
  - Cognitive disorder [None]
  - Skin burning sensation [None]
  - Sleep terror [None]
  - Agoraphobia [None]
  - Derealisation [None]
  - Akathisia [None]
  - Bone pain [None]
  - Fatigue [None]
  - Insomnia [None]
  - Suicidal ideation [None]
  - Drug interaction [None]
  - Loss of personal independence in daily activities [None]

NARRATIVE: CASE EVENT DATE: 20151030
